FAERS Safety Report 5701147-X (Version None)
Quarter: 2008Q2

REPORT INFORMATION
  Report Type: 
  Country: None (occurrence: None)
  Receive Date: 20080410
  Receipt Date: 20080401
  Transmission Date: 20081010
  Serious: Yes (Other)
  Sender: FDA-Public Use
  Company Number: US-PFIZER INC-2008028921

PATIENT
  Sex: Female
  Weight: 63.5 kg

DRUGS (4)
  1. GEODON [Suspect]
     Indication: DEPRESSION
     Route: 048
     Dates: start: 20080328, end: 20080331
  2. CYMBALTA [Concomitant]
  3. KLONOPIN [Concomitant]
  4. IBUPROFEN [Concomitant]

REACTIONS (12)
  - AGITATION [None]
  - CRYING [None]
  - FATIGUE [None]
  - FEELING ABNORMAL [None]
  - HOMICIDAL IDEATION [None]
  - MANIA [None]
  - PALPITATIONS [None]
  - PANIC REACTION [None]
  - SLUGGISHNESS [None]
  - SOMNOLENCE [None]
  - SUICIDAL IDEATION [None]
  - THINKING ABNORMAL [None]
